FAERS Safety Report 7364149-6 (Version None)
Quarter: 2011Q1

REPORT INFORMATION
  Report Type: 
  Country: None (occurrence: None)
  Receive Date: 20110321
  Receipt Date: 20110318
  Transmission Date: 20110831
  Serious: Yes (Death, Hospitalization)
  Sender: FDA-Public Use
  Company Number: AU-ABBOTT-11P-008-0712403-00

PATIENT
  Sex: Female

DRUGS (1)
  1. HUMIRA [Suspect]
     Indication: PYODERMA GANGRENOSUM
     Dates: start: 20090201, end: 20110201

REACTIONS (2)
  - PYODERMA GANGRENOSUM [None]
  - NOCARDIOSIS [None]
